FAERS Safety Report 21314757 (Version 1)
Quarter: 2022Q3

REPORT INFORMATION
  Report Type: Spontaneous
  Country: US (occurrence: None)
  Receive Date: 20220909
  Receipt Date: 20220909
  Transmission Date: 20221027
  Serious: No
  Sender: FDA-Public Use
  Company Number: US-ARIS GLOBAL-202111-1981

PATIENT
  Sex: Male

DRUGS (14)
  1. OXERVATE [Suspect]
     Active Substance: CENEGERMIN-BKBJ
     Indication: Neurotrophic keratopathy
     Route: 047
     Dates: start: 20211020
  2. METHOTREXATE [Concomitant]
     Active Substance: METHOTREXATE
  3. ZINC [Concomitant]
     Active Substance: ZINC
  4. POTASSIUM [Concomitant]
     Active Substance: POTASSIUM
     Dosage: 595(99)
  5. MAGNESIUM [Concomitant]
     Active Substance: MAGNESIUM
  6. FISH OIL [Concomitant]
     Active Substance: FISH OIL
  7. VITAMIN C [Concomitant]
     Active Substance: ASCORBIC ACID
  8. IRON [Concomitant]
     Active Substance: IRON
     Dosage: 325(65)
  9. VITAMIN D3 [Concomitant]
     Active Substance: CHOLECALCIFEROL
  10. CLARITIN [Concomitant]
     Active Substance: LORATADINE
  11. PANTOPRAZOLE SODIUM [Concomitant]
     Active Substance: PANTOPRAZOLE SODIUM
  12. IRBESARTAN [Concomitant]
     Active Substance: IRBESARTAN
  13. HYDROXYCHLOROQUINE SULFATE [Concomitant]
     Active Substance: HYDROXYCHLOROQUINE SULFATE
  14. ETODOLAC [Concomitant]
     Active Substance: ETODOLAC

REACTIONS (6)
  - Periorbital pain [Unknown]
  - Eyelid pain [Unknown]
  - Lacrimation increased [Unknown]
  - Ocular hyperaemia [Unknown]
  - Ocular hyperaemia [Unknown]
  - Rhinorrhoea [Unknown]
